FAERS Safety Report 7469040-2 (Version None)
Quarter: 2011Q2

REPORT INFORMATION
  Report Type: 
  Country: None (occurrence: None)
  Receive Date: 20110429
  Receipt Date: 20110413
  Transmission Date: 20111010
  Serious: Yes (Death)
  Sender: FDA-Public Use
  Company Number: 029766

PATIENT
  Sex: Female
  Weight: 100 kg

DRUGS (4)
  1. TOPAMAX [Concomitant]
  2. LACOSAMIDE [Suspect]
     Indication: EPILEPSY
     Dosage: (200 MG BID ORAL)
     Route: 048
     Dates: start: 20100701
  3. TEGRETOL [Concomitant]
  4. FIORICET [Concomitant]

REACTIONS (20)
  - HEAD INJURY [None]
  - BACK PAIN [None]
  - CLONIC CONVULSION [None]
  - DISORIENTATION [None]
  - CARDIAC ARREST [None]
  - MOTOR DYSFUNCTION [None]
  - HAEMOGLOBIN DECREASED [None]
  - BLOOD ALKALINE PHOSPHATASE INCREASED [None]
  - HYPOKALAEMIA [None]
  - HYPOMAGNESAEMIA [None]
  - UNRESPONSIVE TO STIMULI [None]
  - BLOOD GLUCOSE INCREASED [None]
  - ATELECTASIS [None]
  - HYPOXIC-ISCHAEMIC ENCEPHALOPATHY [None]
  - SENSORY LOSS [None]
  - ACTIVATED PARTIAL THROMBOPLASTIN TIME PROLONGED [None]
  - RESPIRATORY FAILURE [None]
  - BLOOD CREATINE PHOSPHOKINASE INCREASED [None]
  - PLEURAL EFFUSION [None]
  - BLOOD ALBUMIN DECREASED [None]
